FAERS Safety Report 11060766 (Version 1)
Quarter: 2015Q2

REPORT INFORMATION
  Report Type: Spontaneous
  Country: US (occurrence: US)
  Receive Date: 20150423
  Receipt Date: 20150423
  Transmission Date: 20150821
  Serious: Yes (Hospitalization)
  Sender: FDA-Public Use
  Company Number: US-OTSUKA-US-2015-11707

PATIENT

DRUGS (1)
  1. SAMSCA [Suspect]
     Active Substance: TOLVAPTAN
     Indication: PRODUCT USED FOR UNKNOWN INDICATION
     Dosage: 15 MG MILLIGRAM(S), QD
     Route: 048
     Dates: start: 201410

REACTIONS (3)
  - Hyponatraemia [Unknown]
  - Incorrect drug administration duration [Unknown]
  - Confusional state [Unknown]

NARRATIVE: CASE EVENT DATE: 20150414
